FAERS Safety Report 24397631 (Version 1)
Quarter: 2024Q4

REPORT INFORMATION
  Report Type: Spontaneous
  Country: US (occurrence: US)
  Receive Date: 20241004
  Receipt Date: 20241004
  Transmission Date: 20250114
  Serious: No
  Sender: SANOFI AVENTIS
  Company Number: US-SA-2024SA272985

PATIENT
  Age: 54 Year
  Sex: Female
  Weight: 74.55 kg

DRUGS (1)
  1. DUPIXENT [Suspect]
     Active Substance: DUPILUMAB
     Dosage: 300 MG, QOW
     Route: 058
     Dates: end: 202408

REACTIONS (7)
  - Conjunctivitis [Unknown]
  - Eye irritation [Unknown]
  - Photophobia [Recovered/Resolved]
  - Dry eye [Unknown]
  - Eye pruritus [Unknown]
  - Eye inflammation [Unknown]
  - Eye discharge [Unknown]

NARRATIVE: CASE EVENT DATE: 20240101
